FAERS Safety Report 9472892 (Version 1)
Quarter: 2013Q3

REPORT INFORMATION
  Report Type: Spontaneous
  Country: FR (occurrence: FR)
  Receive Date: 20130823
  Receipt Date: 20130823
  Transmission Date: 20140515
  Serious: Yes (Other)
  Sender: FDA-Public Use
  Company Number: FR-ABBOTT-13P-056-1134719-00

PATIENT
  Age: 38 Year
  Sex: Female

DRUGS (1)
  1. HUMIRA [Suspect]
     Indication: CROHN^S DISEASE
     Route: 058
     Dates: start: 20130312

REACTIONS (8)
  - Eyelid oedema [Recovered/Resolved]
  - Hypersensitivity [Recovered/Resolved]
  - Injection site swelling [Recovered/Resolved]
  - Urticaria [Recovered/Resolved]
  - Pruritus [Recovered/Resolved]
  - Hypertension [Recovered/Resolved]
  - Heart rate increased [Recovered/Resolved]
  - Injection site pain [Recovered/Resolved]
